FAERS Safety Report 7341039-6 (Version None)
Quarter: 2011Q1

REPORT INFORMATION
  Report Type: 
  Country: None (occurrence: None)
  Receive Date: 20110309
  Receipt Date: 20110225
  Transmission Date: 20110831
  Serious: Yes (Hospitalization)
  Sender: FDA-Public Use
  Company Number: US-ACTELION-A-NJ2011-43589

PATIENT

DRUGS (1)
  1. TRACLEER [Suspect]
     Indication: PULMONARY ARTERIAL HYPERTENSION
     Dosage: UNK
     Route: 048
     Dates: start: 20101111

REACTIONS (5)
  - PULMONARY OEDEMA [None]
  - PNEUMONIA [None]
  - PULMONARY ARTERIAL HYPERTENSION [None]
  - OEDEMA [None]
  - DYSPNOEA [None]
